FAERS Safety Report 9283815 (Version 1)
Quarter: 2013Q2

REPORT INFORMATION
  Report Type: Spontaneous
  Country: US (occurrence: None)
  Receive Date: 20130506
  Receipt Date: 20130506
  Transmission Date: 20140414
  Serious: No
  Sender: FDA-Public Use
  Company Number: 2012-002978

PATIENT
  Age: 59 Year
  Sex: Female
  Weight: 72.6 kg

DRUGS (68)
  1. ACTONEL (RISEDRONATE SODIUM) TABLET, 150MG [Suspect]
     Dosage: ONCE MONTHLY
     Route: 048
     Dates: start: 200809, end: 201205
  2. ACTONEL [Suspect]
     Route: 048
     Dates: start: 201009
  3. ACTONEL (RISEDRONATE SODIUM) TABLET, 35MG [Suspect]
     Dosage: ONCE WEEKLY
     Route: 048
     Dates: start: 200608, end: 201006
  4. FOSAMAX (ALENDRONATE SODIUM) [Suspect]
     Dates: start: 200308, end: 200608
  5. PREDNISONE (PREDNISONE) [Concomitant]
  6. SINGULAIR [Concomitant]
  7. PULMICORT (BUDESONIDE) [Concomitant]
  8. PROVENTIL   /00139501/ (SALBUTAMOL) [Concomitant]
  9. PROAIR HFA (SALBUTAMOL SULFATE) [Concomitant]
  10. ASTELIN   /00884002/ (AZELASTINE HYDROCHLORIDE) [Concomitant]
  11. NASONEX (MOMETASONE FUROATE) [Concomitant]
  12. ASMANEX [Concomitant]
  13. ACYCLOVIR   /00587301/ (ACICLOVIR) [Concomitant]
  14. AZITHROMYCIN (AZITHROMYCIN) [Concomitant]
  15. DOXYCYCLINE (DOXYCYCLINE) [Concomitant]
  16. LEVAQUIN (LEVOFLOXACIN) [Concomitant]
  17. CIPROFLOXACIN (CIPROFLOXACIN) [Concomitant]
  18. CLINDAMYCIN (CLINDAMYCIN) [Concomitant]
  19. PROMETHAZINE (PROMETHAZINE) [Concomitant]
  20. IOPHEN-C NR (CODEINE PHOSPHATE, GUAIFENESIN) [Concomitant]
  21. BENZONATATE (BENZONATATE) [Concomitant]
  22. MUCINEX (GUAIFENESIN) [Concomitant]
  23. MOTRIN (IBUPROFEN) [Concomitant]
  24. SULINDAC (SULINDAC) [Concomitant]
  25. MELOXICAM (MELOXICAM) [Concomitant]
  26. DIFLUNISAL (DIFLUNISAL) [Concomitant]
  27. FLECTOR   /00372302/ (DICLOFENAC SODIUM) [Concomitant]
  28. KETOPROFEN (KETOPROFEN) [Concomitant]
  29. VOLTAREN   /00372301/ (DICLOFENAC) [Concomitant]
  30. CELEBREX (CELECOXIB) [Concomitant]
  31. TRAMADOL (TRAMADOL) [Concomitant]
  32. ENDOCET (OXYCODONE HYDROCHLORIDE, PARACETAMOL) [Concomitant]
  33. FENTANYL (FENTANYL) [Concomitant]
  34. METHOCARBAMOL (METHOCARBAMOL) [Concomitant]
  35. CYCLOBENZAPRINE (CYCLOBENZAPRINE) [Concomitant]
  36. SKELAXIN   /00611501/ (METAXALONE) [Concomitant]
  37. IMITREX   /01044801/ (SUMATRIPTAN) [Concomitant]
  38. TOPAMAX (TOPIRAMATE) [Concomitant]
  39. CYMBALTA (DULOXETINE HYDROCHLORIDE) [Concomitant]
  40. GABAPENTIN [Concomitant]
  41. FUROSEMIDE [Concomitant]
  42. SPIRONOLACTONE [Concomitant]
  43. VERAPAMIL [Concomitant]
  44. ZETIA (EZETIMIBE) [Concomitant]
  45. VYTORIN (EZETIMIBE, SIMVASTATIN) [Concomitant]
  46. SULAR (NISOLDIPINE) [Concomitant]
  47. TRICOR   /00090101/ (ADENOSINE) [Concomitant]
  48. NIASPAN (NICOTINOC ACID) [Concomitant]
  49. DETROL LA (TOLTERODINE L-TARTRATE) [Concomitant]
  50. METROCLOPRAMIDE [Concomitant]
  51. RANITIDINE [Concomitant]
  52. NEXIUM   /01479302/ (ESOMEPRAZOLE MAGNESIUM) [Concomitant]
  53. OMEPRAZOLE [Concomitant]
  54. BUTALBITAL W/CAFFEINE/PARACETAMOL (BUTALBITAL, CAFFEINE, PARACETAMOL) [Concomitant]
  55. AMITIZA (LUBIPROSTONE) [Concomitant]
  56. OPTIVAR (AZELASTINE HYDROCHLORIDE) [Concomitant]
  57. PATANOL (OLOPATADINE HYDROCHLORIDE) [Concomitant]
  58. CICLOPIROX (CICLOPIROX) [Concomitant]
  59. GENTAMICIIN (GENTAMICIN) [Concomitant]
  60. ALOMIDE   /00997502/ (LODOXAMIDE TROMETHAMINE) [Concomitant]
  61. TOBRADEX (DEXAMETHASONE, TOBRAMYCIN) [Concomitant]
  62. ATROPINE SULFATE (ATROPINE SULFATE) [Concomitant]
  63. OFLOXACIN [Concomitant]
  64. PREDNISOLONE [Concomitant]
  65. ISTALOL (TIMOLOL MALEATE) [Concomitant]
  66. VITAMIN B1 (THIAMINE HYDROCHLORIDE) [Concomitant]
  67. CALTRATE   /00751519/ (CALCIUM CARBONATE) [Concomitant]
  68. VITAMIN D   /00318501/ (COLECALCIFEROL) [Concomitant]

REACTIONS (5)
  - Femur fracture [None]
  - Pain in extremity [None]
  - Stress fracture [None]
  - Fall [None]
  - Gait disturbance [None]
